FAERS Safety Report 9881783 (Version 1)
Quarter: 2014Q1

REPORT INFORMATION
  Report Type: Spontaneous
  Country: US (occurrence: US)
  Receive Date: 20140207
  Receipt Date: 20140207
  Transmission Date: 20141002
  Serious: Yes (Other)
  Sender: FDA-Public Use
  Company Number: US-WATSON-2014-01788

PATIENT
  Age: 65 Year
  Sex: Male
  Weight: 71 kg

DRUGS (2)
  1. RAPAFLO (WATSON LABORATORIES) [Suspect]
     Indication: PROSTATOMEGALY
     Dosage: UNK UNK, DAILY
     Route: 048
     Dates: start: 201311
  2. ASPIRIN [Concomitant]
     Indication: PROPHYLAXIS
     Dosage: 81 MG, DAILY
     Route: 048

REACTIONS (4)
  - Dizziness [Not Recovered/Not Resolved]
  - Diarrhoea [Not Recovered/Not Resolved]
  - Blood pressure increased [Not Recovered/Not Resolved]
  - Headache [Not Recovered/Not Resolved]
